FAERS Safety Report 13002364 (Version 1)
Quarter: 2016Q4

REPORT INFORMATION
  Report Type: Other
  Country: GB (occurrence: GB)
  Receive Date: 20161206
  Receipt Date: 20161206
  Transmission Date: 20170207
  Serious: Yes (Other)
  Sender: FDA-Public Use
  Company Number: GB-PERRIGO-16GB022390

PATIENT

DRUGS (1)
  1. PARACETAMOL [Suspect]
     Active Substance: ACETAMINOPHEN
     Indication: BODY TEMPERATURE INCREASED
     Dosage: 5 ML, UNK
     Route: 048
     Dates: start: 20161121

REACTIONS (2)
  - Diarrhoea [Recovered/Resolved with Sequelae]
  - Vomiting [Recovering/Resolving]

NARRATIVE: CASE EVENT DATE: 20161121
